FAERS Safety Report 21248127 (Version 1)
Quarter: 2022Q3

REPORT INFORMATION
  Report Type: Spontaneous
  Country: US (occurrence: None)
  Receive Date: 20220823
  Receipt Date: 20220823
  Transmission Date: 20221026
  Serious: Yes (Hospitalization)
  Sender: FDA-Public Use
  Company Number: None

PATIENT
  Age: 35 Year
  Sex: Male
  Weight: 88 kg

DRUGS (1)
  1. POTELIGEO [Suspect]
     Active Substance: MOGAMULIZUMAB-KPKC
     Indication: Cutaneous T-cell lymphoma
     Dosage: OTHER FREQUENCY : EVERY 14 DAYS;?
     Route: 041
     Dates: start: 20210713, end: 20220712

REACTIONS (5)
  - Acute kidney injury [None]
  - Nephrotic syndrome [None]
  - Tubulointerstitial nephritis [None]
  - Focal segmental glomerulosclerosis [None]
  - Glomerulonephritis membranous [None]

NARRATIVE: CASE EVENT DATE: 20220721
